FAERS Safety Report 5599050-1 (Version None)
Quarter: 2008Q1

REPORT INFORMATION
  Report Type: 
  Country: None (occurrence: None)
  Receive Date: 20080122
  Receipt Date: 20080116
  Transmission Date: 20080703
  Serious: Yes (Hospitalization)
  Sender: FDA-Public Use
  Company Number: GB-BOEHRINGER INGELHEIM PHARMACEUTICALS, INC.-2007-DE-06590GD

PATIENT
  Age: 61 Year
  Sex: Male

DRUGS (1)
  1. TIOTROPIUM-BROMIDE [Suspect]
     Indication: CHRONIC OBSTRUCTIVE PULMONARY DISEASE
     Route: 055
     Dates: start: 20031106

REACTIONS (9)
  - DYSARTHRIA [None]
  - FACE INJURY [None]
  - FACIAL PARESIS [None]
  - HEMICEPHALALGIA [None]
  - HERPES ZOSTER OTICUS [None]
  - NAUSEA [None]
  - VERTEBROBASILAR INSUFFICIENCY [None]
  - VERTIGO [None]
  - VESTIBULAR DISORDER [None]
